FAERS Safety Report 16180364 (Version 1)
Quarter: 2019Q2

REPORT INFORMATION
  Report Type: Spontaneous
  Country: US (occurrence: US)
  Receive Date: 20190410
  Receipt Date: 20190410
  Transmission Date: 20190711
  Serious: No
  Sender: FDA-Public Use
  Company Number: US-SA-2018SA072698

PATIENT
  Age: 74 Year
  Sex: Female

DRUGS (1)
  1. NASACORT ALLERGY 24HR [Suspect]
     Active Substance: TRIAMCINOLONE ACETONIDE
     Indication: RHINORRHOEA
     Dosage: 55 UG,1X
     Route: 065

REACTIONS (3)
  - Dyspnoea [Recovered/Resolved]
  - Product dose omission [Unknown]
  - Nasal discomfort [Recovered/Resolved]
